FAERS Safety Report 8421105-4 (Version None)
Quarter: 2012Q2

REPORT INFORMATION
  Report Type: 
  Country: None (occurrence: None)
  Receive Date: 20120604
  Receipt Date: 20120604
  Transmission Date: 20120825
  Serious: No
  Sender: FDA-Public Use
  Company Number: None

PATIENT
  Age: 7 Year
  Sex: Female
  Weight: 20 kg

DRUGS (1)
  1. ZOSYN [Suspect]
     Dosage: 2000MG Q6H IV
     Route: 042

REACTIONS (3)
  - RASH MACULO-PAPULAR [None]
  - ERYTHEMA [None]
  - RASH PRURITIC [None]
